FAERS Safety Report 5936796-7 (Version None)
Quarter: 2008Q4

REPORT INFORMATION
  Report Type: 
  Country: None (occurrence: None)
  Receive Date: 20081029
  Receipt Date: 20081015
  Transmission Date: 20090506
  Serious: Yes (Death)
  Sender: FDA-Public Use
  Company Number: ADE08003-L

PATIENT
  Age: 47 Year
  Sex: Male

DRUGS (2)
  1. CYCLOSPORINE [Suspect]
     Indication: IMMUNOMODULATORY THERAPY
     Dosage: IV, 4 MG/KG/DAY INITIAL
  2. IV STEROIDS [Concomitant]

REACTIONS (3)
  - CONVULSION [None]
  - DUODENAL ULCER HAEMORRHAGE [None]
  - SHOCK HAEMORRHAGIC [None]
